FAERS Safety Report 4875834-X (Version None)
Quarter: 2006Q1

REPORT INFORMATION
  Report Type: 
  Country: None (occurrence: None)
  Receive Date: 20060109
  Receipt Date: 20050314
  Transmission Date: 20060701
  Serious: Yes (Hospitalization, Disabling)
  Sender: FDA-Public Use
  Company Number: US-MERCK-0503USA02899

PATIENT
  Age: 64 Year
  Sex: Female
  Weight: 75 kg

DRUGS (3)
  1. VIOXX [Suspect]
     Indication: ARTHRITIS
     Route: 048
     Dates: start: 20010730, end: 20011030
  2. VIOXX [Suspect]
     Route: 048
     Dates: start: 20011101, end: 20021225
  3. VIOXX [Suspect]
     Route: 048
     Dates: start: 20030123, end: 20040726

REACTIONS (3)
  - ANGINA PECTORIS [None]
  - CEREBROVASCULAR ACCIDENT [None]
  - JOINT INJURY [None]
